FAERS Safety Report 5147119-8 (Version None)
Quarter: 2006Q4

REPORT INFORMATION
  Report Type: 
  Country: None (occurrence: None)
  Receive Date: 20061103
  Receipt Date: 20061019
  Transmission Date: 20070319
  Serious: Yes (Disabling)
  Sender: FDA-Public Use
  Company Number: S06-DEN-02851-01

PATIENT
  Age: 32 Year
  Sex: Male
  Weight: 97 kg

DRUGS (4)
  1. ESCITALOPRAM [Suspect]
     Indication: DEPRESSION
     Dosage: 10 MG QD PO
     Route: 048
     Dates: start: 20060613, end: 20060627
  2. CITALOPRAM HYDROBROMIDE [Suspect]
     Indication: DEPRESSION
     Dosage: 20 MG QD PO
     Route: 048
     Dates: start: 20060519, end: 20060613
  3. INSULIN [Concomitant]
  4. ISOPHANE INSULIN [Concomitant]

REACTIONS (3)
  - BLOOD GLUCOSE DECREASED [None]
  - DIABETES MELLITUS INADEQUATE CONTROL [None]
  - FEELING ABNORMAL [None]
